FAERS Safety Report 25679415 (Version 1)
Quarter: 2025Q3

REPORT INFORMATION
  Report Type: Spontaneous
  Country: US (occurrence: US)
  Receive Date: 20250814
  Receipt Date: 20250814
  Transmission Date: 20251021
  Serious: No
  Sender: RANBAXY
  Company Number: US-SUN PHARMACEUTICAL INDUSTRIES LTD-2024R1-467506

PATIENT
  Age: 66 Year
  Sex: Female

DRUGS (1)
  1. TRAMADOL [Suspect]
     Active Substance: TRAMADOL
     Indication: Product used for unknown indication
     Route: 048
     Dates: start: 20240812, end: 20240906

REACTIONS (3)
  - Muscle spasms [Recovered/Resolved]
  - Neuralgia [Recovered/Resolved]
  - Palpitations [Recovered/Resolved]
